FAERS Safety Report 8399268 (Version 2)
Quarter: 2015Q4

REPORT INFORMATION
  Report Type: Spontaneous
  Country: BR (occurrence: BR)
  Receive Date: 20120210
  Receipt Date: 20151231
  Transmission Date: 20160305
  Serious: Yes (Hospitalization, Other)
  Sender: FDA-Public Use
  Company Number: BR-PFIZER INC-2012031513

PATIENT
  Age: 65 Year
  Sex: Female

DRUGS (5)
  1. TRAMAL [Suspect]
     Active Substance: TRAMADOL
     Dosage: UNK
     Dates: start: 201106
  2. CELEBRA [Suspect]
     Active Substance: CELECOXIB
     Indication: PAIN
     Dosage: 200 MG (ONE TABLET), 3X/DAY
     Route: 048
     Dates: start: 2010, end: 201111
  3. LYRICA [Concomitant]
     Active Substance: PREGABALIN
     Indication: SURGERY
     Dosage: UNK
     Route: 048
     Dates: start: 201106
  4. LEFLUNOMIDE. [Concomitant]
     Active Substance: LEFLUNOMIDE
     Indication: ARTHRITIS
  5. METHOTREXATE [Concomitant]
     Active Substance: METHOTREXATE
     Indication: SKIN CANCER

REACTIONS (4)
  - Neoplasm malignant [Unknown]
  - Thyroid disorder [Unknown]
  - Calcium deficiency [Unknown]
  - Pneumonia [Unknown]

NARRATIVE: CASE EVENT DATE: 2011
